FAERS Safety Report 7169663-4 (Version None)
Quarter: 2010Q4

REPORT INFORMATION
  Report Type: 
  Country: None (occurrence: None)
  Receive Date: 20101202
  Receipt Date: 20101120
  Transmission Date: 20110411
  Serious: Yes (Other)
  Sender: FDA-Public Use
  Company Number: 2010AP002498

PATIENT
  Age: 77 Year
  Sex: Female

DRUGS (1)
  1. MIRTAZAPINE [Suspect]
     Indication: DEPRESSION
     Dosage: 7.5 MG;QD ; 15 MG;QD ; 7.5 MG;PM

REACTIONS (1)
  - HALLUCINATION, VISUAL [None]
